FAERS Safety Report 5480095-7 (Version None)
Quarter: 2007Q4

REPORT INFORMATION
  Report Type: 
  Country: None (occurrence: None)
  Receive Date: 20071009
  Receipt Date: 20070927
  Transmission Date: 20080405
  Serious: Yes (Hospitalization)
  Sender: FDA-Public Use
  Company Number: CA-JNJFOC-20071000266

PATIENT
  Sex: Male

DRUGS (1)
  1. REMICADE [Suspect]
     Indication: COLITIS ULCERATIVE
     Dosage: 3 INFUSIONS
     Route: 042

REACTIONS (4)
  - ANGIOSARCOMA [None]
  - COLITIS ULCERATIVE [None]
  - EXTRAGONADAL PRIMARY MALIGNANT TERATOMA [None]
  - SEMINOMA [None]
